FAERS Safety Report 5880437-4 (Version None)
Quarter: 2008Q3

REPORT INFORMATION
  Report Type: 
  Country: None (occurrence: None)
  Receive Date: 20080912
  Receipt Date: 20080606
  Transmission Date: 20090109
  Serious: No
  Sender: FDA-Public Use
  Company Number: US-ABBOTT-08P-163-0445895-00

PATIENT
  Sex: Female
  Weight: 61.29 kg

DRUGS (6)
  1. HUMIRA [Suspect]
     Indication: ANKYLOSING SPONDYLITIS
     Route: 058
     Dates: start: 20070701
  2. MORPHINE HCL ELIXIR [Concomitant]
     Indication: PAIN
     Route: 048
     Dates: start: 20070301
  3. METHOTREXATE [Concomitant]
     Indication: ANKYLOSING SPONDYLITIS
     Dosage: 2.5MG X 2 WEEKLY
     Route: 048
     Dates: start: 20070901
  4. ESCITALOPRAM OXALATE [Concomitant]
     Indication: DEPRESSION
     Route: 048
     Dates: start: 20070301
  5. NABUMETONE [Concomitant]
     Indication: PAIN
     Route: 048
     Dates: start: 20070301
  6. NABUMETONE [Concomitant]
     Indication: INFLAMMATION

REACTIONS (3)
  - ACCIDENTAL EXPOSURE [None]
  - INJECTION SITE PAIN [None]
  - URTICARIA [None]
